FAERS Safety Report 8427758-9 (Version None)
Quarter: 2012Q2

REPORT INFORMATION
  Report Type: 
  Country: None (occurrence: None)
  Receive Date: 20120611
  Receipt Date: 20120606
  Transmission Date: 20120825
  Serious: Yes (Life-Threatening)
  Sender: FDA-Public Use
  Company Number: US-ASTRAZENECA-2012SE38132

PATIENT
  Age: 43 Year
  Sex: Female

DRUGS (1)
  1. QUETIAPINE [Suspect]
     Indication: SCHIZOAFFECTIVE DISORDER
     Route: 048

REACTIONS (4)
  - CARDIAC ARREST [None]
  - PREMATURE BABY [None]
  - CARDIOMYOPATHY [None]
  - MATERNAL EXPOSURE DURING PREGNANCY [None]
